FAERS Safety Report 21300144 (Version 1)
Quarter: 2022Q3

REPORT INFORMATION
  Report Type: Spontaneous
  Country: US (occurrence: None)
  Receive Date: 20220906
  Receipt Date: 20220906
  Transmission Date: 20221026
  Serious: No
  Sender: FDA-Public Use
  Company Number: None

PATIENT
  Age: 75 Year
  Sex: Male
  Weight: 128.82 kg

DRUGS (13)
  1. ABIRATERONE [Suspect]
     Active Substance: ABIRATERONE
     Indication: Prostate cancer
     Dosage: FREQUENCY : DAILY;?
     Route: 048
     Dates: start: 20220606
  2. ATORVASTATIN [Concomitant]
     Active Substance: ATORVASTATIN
  3. BETAPACE [Concomitant]
     Active Substance: SOTALOL HYDROCHLORIDE
  4. BUMEX [Concomitant]
     Active Substance: BUMETANIDE
  5. CASODEX [Concomitant]
     Active Substance: BICALUTAMIDE
  6. cyanocaobalamin [Concomitant]
  7. ELIQUIS [Concomitant]
     Active Substance: APIXABAN
  8. FERROUS SULFATE [Concomitant]
     Active Substance: FERROUS SULFATE
  9. FINASTERIDE [Concomitant]
     Active Substance: FINASTERIDE
  10. FLONASE [Concomitant]
     Active Substance: FLUTICASONE PROPIONATE
  11. GABAPENTIN [Concomitant]
     Active Substance: GABAPENTIN
  12. HUMALOG [Concomitant]
     Active Substance: INSULIN LISPRO
  13. HYDROCHLOROTHIAZIDE [Concomitant]
     Active Substance: HYDROCHLOROTHIAZIDE

REACTIONS (3)
  - Fatigue [None]
  - Blood glucose decreased [None]
  - Heart rate decreased [None]
